FAERS Safety Report 21081895 (Version 1)
Quarter: 2022Q3

REPORT INFORMATION
  Report Type: Spontaneous
  Country: CO (occurrence: CO)
  Receive Date: 20220714
  Receipt Date: 20220714
  Transmission Date: 20221027
  Serious: Yes (Other)
  Sender: FDA-Public Use
  Company Number: CO-PFIZER INC-PV202200015881

PATIENT
  Age: 73 Year
  Sex: Female

DRUGS (4)
  1. LATANOPROST [Suspect]
     Active Substance: LATANOPROST
     Indication: Ocular hypertension
     Dosage: UNK
  2. LUMIGAN [Suspect]
     Active Substance: BIMATOPROST
     Indication: Ocular hypertension
     Dosage: UNK, 4X/DAY
  3. BRIMONIDINE TARTRATE\DORZOLAMIDE HYDROCHLORIDE\TIMOLOL MALEATE [Suspect]
     Active Substance: BRIMONIDINE TARTRATE\DORZOLAMIDE HYDROCHLORIDE\TIMOLOL MALEATE
     Indication: Ocular hypertension
     Dosage: UNK
  4. DORZOLAMIDE HYDROCHLORIDE\TIMOLOL MALEATE [Suspect]
     Active Substance: DORZOLAMIDE HYDROCHLORIDE\TIMOLOL MALEATE
     Indication: Ocular hypertension
     Dosage: UNK

REACTIONS (1)
  - Drug intolerance [Unknown]
